FAERS Safety Report 25121663 (Version 2)
Quarter: 2025Q2

REPORT INFORMATION
  Report Type: Spontaneous
  Country: US (occurrence: US)
  Receive Date: 20250326
  Receipt Date: 20250430
  Transmission Date: 20250716
  Serious: No
  Sender: ABBVIE
  Company Number: US-ABBVIE-6195955

PATIENT
  Age: 57 Year
  Sex: Male
  Weight: 71.1 kg

DRUGS (1)
  1. FOSCARBIDOPA\FOSLEVODOPA [Suspect]
     Active Substance: FOSCARBIDOPA\FOSLEVODOPA
     Indication: Parkinson^s disease
     Route: 058
     Dates: start: 20250204

REACTIONS (1)
  - Infusion site rash [Not Recovered/Not Resolved]

NARRATIVE: CASE EVENT DATE: 20250305
